FAERS Safety Report 5236912-9 (Version None)
Quarter: 2007Q1

REPORT INFORMATION
  Report Type: 
  Country: None (occurrence: None)
  Receive Date: 20061208
  Receipt Date: 20050228
  Transmission Date: 20070707
  Serious: Yes (Other)
  Sender: FDA-Public Use
  Company Number: 2005UW02800

PATIENT
  Sex: Female
  Weight: 67.131 kg

DRUGS (5)
  1. CRESTOR [Suspect]
     Indication: HYPERCHOLESTEROLAEMIA
     Dosage: 10 MG DAILY  PO
     Route: 048
  2. HYZAAR [Concomitant]
  3. DILANTIN [Concomitant]
  4. FOSAMAX [Concomitant]
  5. GLUCOTROL XL [Concomitant]

REACTIONS (5)
  - DYSPNOEA [None]
  - FATIGUE [None]
  - HAEMOGLOBIN DECREASED [None]
  - MUSCULAR WEAKNESS [None]
  - OEDEMA PERIPHERAL [None]
